FAERS Safety Report 9199551 (Version 1)
Quarter: 2013Q1

REPORT INFORMATION
  Report Type: Spontaneous
  Country: US (occurrence: US)
  Receive Date: 20130329
  Receipt Date: 20130329
  Transmission Date: 20140127
  Serious: No
  Sender: FDA-Public Use
  Company Number: US-GLAXOSMITHKLINE-A1004946A

PATIENT
  Sex: Female

DRUGS (1)
  1. BENLYSTA [Suspect]
     Dosage: 1160MG SINGLE DOSE
     Route: 042
     Dates: start: 20121210

REACTIONS (3)
  - Overdose [Unknown]
  - Nausea [Unknown]
  - Dizziness [Unknown]
